FAERS Safety Report 5202004-8 (Version None)
Quarter: 2007Q1

REPORT INFORMATION
  Report Type: 
  Country: None (occurrence: None)
  Receive Date: 20070109
  Receipt Date: 20070102
  Transmission Date: 20070707
  Serious: Yes (Other)
  Sender: FDA-Public Use
  Company Number: PHEH2007US00446

PATIENT
  Age: 62 Year
  Sex: Female

DRUGS (3)
  1. DIOVAN HCT [Suspect]
     Indication: HYPERTENSION
     Dosage: UNK, UNK
     Dates: start: 20061222, end: 20061226
  2. DIOVAN HCT [Suspect]
     Dosage: 80/12.5 QD
     Dates: start: 20061228, end: 20061230
  3. SUDAFED 12 HOUR [Suspect]

REACTIONS (4)
  - ASTHENIA [None]
  - BLOOD PRESSURE INADEQUATELY CONTROLLED [None]
  - CONFUSIONAL STATE [None]
  - NAUSEA [None]
